FAERS Safety Report 23151041 (Version 2)
Quarter: 2023Q4

REPORT INFORMATION
  Report Type: Spontaneous
  Country: US (occurrence: US)
  Receive Date: 20231106
  Receipt Date: 20231222
  Transmission Date: 20240109
  Serious: Yes (Other)
  Sender: FDA-Public Use
  Company Number: US-BRISTOL-MYERS SQUIBB COMPANY-2023-156335

PATIENT
  Age: 79 Year
  Sex: Male

DRUGS (2)
  1. REVLIMID [Suspect]
     Active Substance: LENALIDOMIDE
     Indication: Plasma cell myeloma
     Dosage: TAKE 1 CAPSULE BY MOUTH ONCE DAILY FOR 21 DAYS ON AND 7 DAYS OFF
     Route: 048
     Dates: start: 202206
  2. REVLIMID [Suspect]
     Active Substance: LENALIDOMIDE
     Dosage: FREQUENCY: 21
     Dates: start: 20220613

REACTIONS (6)
  - Dysphonia [Unknown]
  - Macular degeneration [Unknown]
  - Paranasal sinus hypersecretion [Unknown]
  - Rhinorrhoea [Unknown]
  - Cough [Unknown]
  - Constipation [Unknown]

NARRATIVE: CASE EVENT DATE: 20230101
